FAERS Safety Report 10029170 (Version 1)
Quarter: 2014Q1

REPORT INFORMATION
  Report Type: Spontaneous
  Country: FR (occurrence: FR)
  Receive Date: 20140321
  Receipt Date: 20140321
  Transmission Date: 20141002
  Serious: Yes (Hospitalization)
  Sender: FDA-Public Use
  Company Number: FR-B.I. PHARMACEUTICALS,INC./RIDGEFIELD-2014-BI-12404YA

PATIENT
  Age: 75 Year
  Sex: Male

DRUGS (3)
  1. TAMSULOSINA [Suspect]
     Indication: PRODUCT USED FOR UNKNOWN INDICATION
     Dosage: FORMULATION: ORODISPERSIBLE TABLET
     Route: 048
     Dates: start: 20110525
  2. DUTASTERIDE [Suspect]
     Indication: PRODUCT USED FOR UNKNOWN INDICATION
     Dosage: 1 DF
     Route: 048
     Dates: start: 20110525, end: 20111011
  3. FINASTERIDE [Suspect]
     Indication: PRODUCT USED FOR UNKNOWN INDICATION
     Dosage: 1 (DF)
     Route: 048
     Dates: start: 20111011, end: 201206

REACTIONS (1)
  - Invasive ductal breast carcinoma [Recovered/Resolved with Sequelae]
